FAERS Safety Report 19485361 (Version 1)
Quarter: 2021Q3

REPORT INFORMATION
  Report Type: Spontaneous
  Country: CA (occurrence: CA)
  Receive Date: 20210702
  Receipt Date: 20210702
  Transmission Date: 20211014
  Serious: Yes (Hospitalization)
  Sender: FDA-Public Use
  Company Number: CA-ROCHE-2860232

PATIENT
  Sex: Male

DRUGS (10)
  1. RITUXIMAB. [Suspect]
     Active Substance: RITUXIMAB
     Indication: RHEUMATOID ARTHRITIS
     Route: 041
  2. LUMIGAN [Concomitant]
     Active Substance: BIMATOPROST
  3. CARBIDOPA. [Concomitant]
     Active Substance: CARBIDOPA
  4. BENADRYL [Concomitant]
     Active Substance: DIPHENHYDRAMINE HYDROCHLORIDE
     Route: 048
  5. TYLENOL [Concomitant]
     Active Substance: ACETAMINOPHEN
     Route: 065
  6. METHYLPREDNISOLONE SODIUM SUCCINATE. [Concomitant]
     Active Substance: METHYLPREDNISOLONE SODIUM SUCCINATE
     Route: 042
  7. TAMSULOSIN [Concomitant]
     Active Substance: TAMSULOSIN
  8. PREDNISONE. [Concomitant]
     Active Substance: PREDNISONE
  9. NAPROXEN. [Concomitant]
     Active Substance: NAPROXEN
  10. LEVODOPA [Concomitant]
     Active Substance: LEVODOPA

REACTIONS (1)
  - Bladder neoplasm [Unknown]
